FAERS Safety Report 4478967-5 (Version None)
Quarter: 2004Q4

REPORT INFORMATION
  Report Type: 
  Country: None (occurrence: None)
  Receive Date: 20041015
  Receipt Date: 20040930
  Transmission Date: 20050328
  Serious: Yes (Death, Other)
  Sender: FDA-Public Use
  Company Number: 2004-DE-04999UP(1)

PATIENT
  Age: 66 Year
  Sex: Male

DRUGS (3)
  1. MIRAPEX [Suspect]
     Indication: PARKINSON'S DISEASE
     Dosage: 0.75 MG ; PO
     Route: 048
     Dates: start: 20040530, end: 20040605
  2. LEVODOPA BENSERAZIDE HYDROCHLO (MADOPAR) [Concomitant]
  3. VENLAFAXINE (VENLAFAXINE) [Concomitant]

REACTIONS (2)
  - CARDIO-RESPIRATORY ARREST [None]
  - GENERAL PHYSICAL HEALTH DETERIORATION [None]
